FAERS Safety Report 9902987 (Version 1)
Quarter: 2014Q1

REPORT INFORMATION
  Report Type: Spontaneous
  Country: TR (occurrence: TR)
  Receive Date: 20140217
  Receipt Date: 20140217
  Transmission Date: 20141002
  Serious: Yes (Other)
  Sender: FDA-Public Use
  Company Number: PHHY2014TR012355

PATIENT
  Sex: Male

DRUGS (2)
  1. EXJADE [Suspect]
     Indication: THALASSAEMIA BETA
     Dosage: 40 MG, UNK
     Route: 048
  2. DESFERAL [Suspect]
     Indication: THALASSAEMIA BETA
     Dosage: 50 MG, 5 DAYS A WEEK
     Route: 048

REACTIONS (1)
  - Tubulointerstitial nephritis [Unknown]
